FAERS Safety Report 19874548 (Version 4)
Quarter: 2024Q4

REPORT INFORMATION
  Report Type: Spontaneous
  Country: US (occurrence: US)
  Receive Date: 20210923
  Receipt Date: 20241113
  Transmission Date: 20250115
  Serious: Yes (Other)
  Sender: PFIZER
  Company Number: US-PFIZER INC-2021815187

PATIENT
  Age: 69 Year
  Sex: Female

DRUGS (2)
  1. XELJANZ [Suspect]
     Active Substance: TOFACITINIB CITRATE
     Indication: Rheumatoid arthritis
     Dosage: 5 MG, TWICE DAILY
     Route: 048
     Dates: start: 202102
  2. XELJANZ [Suspect]
     Active Substance: TOFACITINIB CITRATE
     Dosage: 5 MG, TWICE DAILY
     Route: 048
     Dates: start: 20210416

REACTIONS (14)
  - Fall [Unknown]
  - Dehydration [Unknown]
  - Illness [Unknown]
  - Pelvic fracture [Unknown]
  - Spinal fracture [Unknown]
  - Migraine [Recovered/Resolved]
  - Vomiting [Unknown]
  - Dry eye [Recovered/Resolved]
  - Dry mouth [Recovered/Resolved]
  - Weight increased [Unknown]
  - Blood cholesterol increased [Unknown]
  - Head injury [Unknown]
  - Blood cholesterol increased [Unknown]
  - Blood triglycerides increased [Unknown]

NARRATIVE: CASE EVENT DATE: 20210101
